FAERS Safety Report 9176290 (Version 3)
Quarter: 2014Q1

REPORT INFORMATION
  Report Type: Spontaneous
  Country: US (occurrence: US)
  Receive Date: 20130321
  Receipt Date: 20140226
  Transmission Date: 20141002
  Serious: Yes (Disabling, Other)
  Sender: FDA-Public Use
  Company Number: US-009507513-1303USA007651

PATIENT
  Sex: 0
  Weight: 74.83 kg

DRUGS (6)
  1. DECADRON [Suspect]
     Dosage: UNK
  2. SYNTHROID [Concomitant]
     Dosage: 0.125 MICROGRAM, QD
  3. LIPITOR [Concomitant]
     Dosage: 10 MG, QD
  4. NIFEREX [Concomitant]
     Dosage: 50 MG, TID
  5. PROTONIX [Concomitant]
     Dosage: 40 MG, QD
  6. FOLIC ACID [Concomitant]
     Dosage: 1 MG, QD

REACTIONS (4)
  - Surgery [Unknown]
  - Abscess [Unknown]
  - Flushing [Unknown]
  - Pruritus [Unknown]
